FAERS Safety Report 9774538 (Version 1)
Quarter: 2013Q4

REPORT INFORMATION
  Report Type: Spontaneous
  Country: US (occurrence: US)
  Receive Date: 20131220
  Receipt Date: 20131220
  Transmission Date: 20140711
  Serious: Yes (Hospitalization)
  Sender: FDA-Public Use
  Company Number: US-BAYER-2013-154068

PATIENT
  Age: 38 Year
  Sex: Female
  Weight: 94.33 kg

DRUGS (11)
  1. YASMIN [Suspect]
     Indication: MENSTRUAL CYCLE MANAGEMENT
  2. PRILOSEC [Concomitant]
     Dosage: 20 MG, UNK
  3. FLUCONAZOLE [Concomitant]
     Dosage: 150 MG, UNK
  4. NYSTATIN W/TRIAMCINOLONE [NYSTATIN,TRIAMCINOLONE] [Concomitant]
  5. ATENOLOL [Concomitant]
     Dosage: 50 MG, UNK
  6. IBUPROFEN [Concomitant]
     Dosage: 800 MG, UNK
  7. PROMETHAZINE [Concomitant]
     Dosage: 25 MG, UNK
  8. ASPIRIN [Concomitant]
  9. LIPITOR [Concomitant]
  10. LOPRESSOR [Concomitant]
  11. PHENERGAN [Concomitant]

REACTIONS (2)
  - Coronary artery thrombosis [None]
  - Acute myocardial infarction [None]
